FAERS Safety Report 12070184 (Version 2)
Quarter: 2016Q1

REPORT INFORMATION
  Report Type: Report from Study
  Country: TW (occurrence: TW)
  Receive Date: 20160211
  Receipt Date: 20160218
  Transmission Date: 20160526
  Serious: Yes (Hospitalization, Other)
  Sender: FDA-Public Use
  Company Number: TW-JNJFOC-20160208891

PATIENT
  Age: 51 Year
  Sex: Male
  Weight: 70.38 kg

DRUGS (13)
  1. HEPARIN [Concomitant]
     Active Substance: HEPARIN SODIUM
     Indication: EMBOLISM VENOUS
     Route: 065
     Dates: start: 20151203, end: 20151203
  2. RIVAROXABAN [Suspect]
     Active Substance: RIVAROXABAN
     Indication: PULMONARY EMBOLISM
     Route: 048
     Dates: start: 20151107
  3. RIVAROXABAN [Suspect]
     Active Substance: RIVAROXABAN
     Indication: EMBOLISM VENOUS
     Route: 048
     Dates: start: 20151107
  4. RIVAROXABAN [Suspect]
     Active Substance: RIVAROXABAN
     Indication: PULMONARY EMBOLISM
     Route: 048
     Dates: start: 20150907, end: 20151106
  5. RIVAROXABAN [Suspect]
     Active Substance: RIVAROXABAN
     Indication: DEEP VEIN THROMBOSIS
     Route: 048
     Dates: start: 20150907, end: 20151106
  6. HEPARIN [Concomitant]
     Active Substance: HEPARIN SODIUM
     Indication: EMBOLISM VENOUS
     Route: 065
     Dates: start: 20151029, end: 20151029
  7. RIVAROXABAN [Suspect]
     Active Substance: RIVAROXABAN
     Indication: DEEP VEIN THROMBOSIS
     Route: 048
     Dates: start: 20151107
  8. HEPARIN [Concomitant]
     Active Substance: HEPARIN SODIUM
     Indication: EMBOLISM VENOUS
     Route: 065
     Dates: start: 20151104, end: 20151104
  9. RIVAROXABAN [Suspect]
     Active Substance: RIVAROXABAN
     Indication: EMBOLISM VENOUS
     Route: 048
     Dates: start: 20150829, end: 20150906
  10. HEPARIN [Concomitant]
     Active Substance: HEPARIN SODIUM
     Indication: EMBOLISM VENOUS
     Route: 065
     Dates: start: 20150827, end: 20150827
  11. RIVAROXABAN [Suspect]
     Active Substance: RIVAROXABAN
     Indication: EMBOLISM VENOUS
     Route: 048
     Dates: start: 20150907, end: 20151106
  12. RIVAROXABAN [Suspect]
     Active Substance: RIVAROXABAN
     Indication: PULMONARY EMBOLISM
     Route: 048
     Dates: start: 20150829, end: 20150906
  13. RIVAROXABAN [Suspect]
     Active Substance: RIVAROXABAN
     Indication: DEEP VEIN THROMBOSIS
     Route: 048
     Dates: start: 20150829, end: 20150906

REACTIONS (2)
  - Peripheral arterial occlusive disease [Recovered/Resolved with Sequelae]
  - Peripheral artery occlusion [Recovered/Resolved with Sequelae]

NARRATIVE: CASE EVENT DATE: 20151028
